FAERS Safety Report 8469515-3 (Version None)
Quarter: 2012Q2

REPORT INFORMATION
  Report Type: 
  Country: None (occurrence: None)
  Receive Date: 20120323
  Receipt Date: 20111222
  Transmission Date: 20120825
  Serious: Yes (Disabling)
  Sender: FDA-Public Use
  Company Number: 163-21880-11081835

PATIENT
  Age: 74 Year
  Sex: Male

DRUGS (3)
  1. DECADRON [Concomitant]
  2. VELCADE [Suspect]
     Indication: MULTIPLE MYELOMA
     Dosage: 1.3 MG/M2, DAYS 1, 4, 8, 11 EVERY 21 DAYS, IV
     Route: 042
     Dates: start: 20110721, end: 20111001
  3. REVLIMID [Suspect]
     Indication: MULTIPLE MYELOMA
     Dosage: 25 MG, 14 DAYS ON/21 DAY CYCLE, PO
     Route: 048
     Dates: start: 20110721

REACTIONS (3)
  - PARAESTHESIA [None]
  - NEUROPATHY PERIPHERAL [None]
  - PAIN [None]
